FAERS Safety Report 9538842 (Version 1)
Quarter: 2013Q3

REPORT INFORMATION
  Report Type: Spontaneous
  Country: GR (occurrence: GR)
  Receive Date: 20130920
  Receipt Date: 20130920
  Transmission Date: 20140515
  Serious: Yes (Hospitalization)
  Sender: FDA-Public Use
  Company Number: GR-ROCHE-1278423

PATIENT
  Sex: Female

DRUGS (3)
  1. MABTHERA [Suspect]
     Indication: CHRONIC OBSTRUCTIVE PULMONARY DISEASE
     Route: 065
  2. MABTHERA [Suspect]
     Indication: LYMPHOMA
  3. MABTHERA [Suspect]
     Indication: OFF LABEL USE

REACTIONS (1)
  - Chronic obstructive pulmonary disease [Recovered/Resolved]
